FAERS Safety Report 8545701-9 (Version None)
Quarter: 2012Q3

REPORT INFORMATION
  Report Type: 
  Country: None (occurrence: None)
  Receive Date: 20120727
  Receipt Date: 20120725
  Transmission Date: 20120928
  Serious: Yes (Other)
  Sender: FDA-Public Use
  Company Number: US-ROCHE-1088724

PATIENT
  Sex: Male
  Weight: 95.068 kg

DRUGS (7)
  1. VEMURAFENIB [Suspect]
     Indication: METASTATIC MALIGNANT MELANOMA
     Dosage: LAST DOSE PRIOR TO SAE: 26 JUN 2012
     Route: 048
     Dates: start: 20120523
  2. GDC-0973 (MEK INHIBITOR) [Suspect]
     Indication: METASTATIC MALIGNANT MELANOMA
     Dosage: LAST DOSE PRIOR TO SAE: 25 JUN 2012
     Route: 048
     Dates: start: 20120523
  3. IMODIUM [Concomitant]
     Dosage: 2 MG/125 MG
     Dates: start: 20120524
  4. TYLENOL [Concomitant]
     Dates: start: 20120619
  5. LOMOTIL [Concomitant]
     Dates: start: 20120626
  6. GABAPENTIN [Concomitant]
     Dates: start: 20120614
  7. PRILOSEC [Concomitant]
     Dates: start: 20120604

REACTIONS (1)
  - HYPERTHYROIDISM [None]
